FAERS Safety Report 7889017 (Version 5)
Quarter: 2012Q4

REPORT INFORMATION
  Report Type: Report from Study
  Country: DE (occurrence: DE)
  Receive Date: 20110407
  Receipt Date: 20121011
  Transmission Date: 20130627
  Serious: Yes (Hospitalization, Other)
  Sender: FDA-Public Use
  Company Number: PHHY2011DE24889

PATIENT
  Age: 62 None
  Sex: Female
  Weight: 56 kg

DRUGS (8)
  1. ZOLEDRONATE [Suspect]
     Indication: BONE DISORDER
     Dosage: 4 mg, every 4 weeks
     Route: 042
     Dates: start: 20091103, end: 20101103
  2. ZOLEDRONATE [Suspect]
     Dosage: 4 mg, every 4 weeks
     Route: 042
     Dates: start: 20110202, end: 20110202
  3. FRAGMIN P [Concomitant]
     Route: 058
  4. BEVACIZUMAB [Concomitant]
     Indication: BREAST CANCER METASTATIC
     Dosage: UNK UKN, UNK
     Dates: start: 20101103
  5. PACLITAXEL [Concomitant]
     Indication: BREAST CANCER METASTATIC
     Dosage: 80 mg, per day
     Route: 042
     Dates: start: 20101103
  6. PROTHYRID [Concomitant]
     Indication: HYPOTHYROIDISM
     Dates: start: 1976
  7. MOVICOL [Concomitant]
     Dosage: 2 DF,/ day
     Route: 048
     Dates: start: 201011, end: 201011
  8. IBUPROFEN [Concomitant]
     Dosage: 400 mg, PRN
     Dates: start: 201011, end: 201011

REACTIONS (13)
  - Bone disorder [Recovered/Resolved]
  - Tooth abscess [Recovered/Resolved]
  - Wound dehiscence [Recovered/Resolved]
  - Exposed bone in jaw [Recovered/Resolved]
  - Neoplasm progression [Unknown]
  - Malignant neoplasm progression [Unknown]
  - Metastases to bone [Unknown]
  - Metastases to liver [Unknown]
  - Abdominal pain [Recovered/Resolved]
  - Constipation [Recovered/Resolved]
  - Fatigue [Not Recovered/Not Resolved]
  - Alopecia [Not Recovered/Not Resolved]
  - Nausea [Recovered/Resolved]
